FAERS Safety Report 10289783 (Version 3)
Quarter: 2014Q3

REPORT INFORMATION
  Report Type: Spontaneous
  Country: BR (occurrence: BR)
  Receive Date: 20140710
  Receipt Date: 20140828
  Transmission Date: 20150326
  Serious: Yes (Hospitalization)
  Sender: FDA-Public Use
  Company Number: BR-ELI_LILLY_AND_COMPANY-BR201406009976

PATIENT
  Age: 59 Year
  Sex: Male

DRUGS (8)
  1. DIOVAN [Concomitant]
     Active Substance: VALSARTAN
     Indication: BLOOD PRESSURE
     Dosage: UNK, UNKNOWN
     Route: 065
     Dates: start: 201309
  2. PANTOPRAZOLE [Concomitant]
     Active Substance: PANTOPRAZOLE SODIUM
     Dosage: UNK, UNKNOWN
     Route: 065
  3. ACETYLSALICYLIC ACID [Concomitant]
     Active Substance: ASPIRIN
     Dosage: UNK, UNKNOWN
     Route: 065
  4. INSULIN HUMAN [Suspect]
     Active Substance: INSULIN HUMAN
     Indication: DIABETES MELLITUS
     Dosage: 40 IU, QD
     Route: 065
     Dates: end: 201311
  5. HUMALOG [Suspect]
     Active Substance: INSULIN LISPRO
     Indication: DIABETES MELLITUS
     Dosage: 5 IU, PRN
     Route: 058
     Dates: start: 201311, end: 201405
  6. NORIPURUM [Concomitant]
     Active Substance: IRON POLYMALTOSE
     Indication: ANAEMIA
     Dosage: UNK, UNKNOWN
     Route: 065
  7. HUMALOG [Suspect]
     Active Substance: INSULIN LISPRO
     Indication: DIABETES MELLITUS
     Dosage: 5 IU, PRN
     Route: 058
     Dates: start: 201405
  8. CLOPIDOGREL BISULFATE. [Concomitant]
     Active Substance: CLOPIDOGREL BISULFATE
     Dosage: UNK, UNKNOWN
     Route: 065

REACTIONS (8)
  - Localised infection [Recovering/Resolving]
  - Blood pressure increased [Not Recovered/Not Resolved]
  - Medication error [Unknown]
  - Wound [Recovering/Resolving]
  - Blood creatinine increased [Recovering/Resolving]
  - Injection site pain [Unknown]
  - Blood glucose increased [Not Recovered/Not Resolved]
  - Blister [Recovering/Resolving]

NARRATIVE: CASE EVENT DATE: 201309
